FAERS Safety Report 13229372 (Version 1)
Quarter: 2017Q1

REPORT INFORMATION
  Report Type: Report from Study
  Country: JP (occurrence: JP)
  Receive Date: 20170214
  Receipt Date: 20170214
  Transmission Date: 20170428
  Serious: Yes (Other)
  Sender: FDA-Public Use
  Company Number: JP-ROCHE-1892767

PATIENT

DRUGS (1)
  1. ALTEPLASE [Suspect]
     Active Substance: ALTEPLASE
     Indication: ISCHAEMIC STROKE
     Dosage: 10 % OF THE DOSE GIVEN AS AN INITIAL BOLUS AND THE REMAINDER INFUSED OVER 1 HOUR
     Route: 042

REACTIONS (2)
  - Haemorrhagic transformation stroke [Unknown]
  - Treatment failure [Unknown]
